FAERS Safety Report 13149235 (Version 2)
Quarter: 2017Q1

REPORT INFORMATION
  Report Type: Spontaneous
  Country: US (occurrence: US)
  Receive Date: 20170125
  Receipt Date: 20170228
  Transmission Date: 20170428
  Serious: Yes (Hospitalization, Other)
  Sender: FDA-Public Use
  Company Number: US-SMITH AND NEPHEW, INC-2017SMT00042

PATIENT
  Age: 42 Year
  Sex: Female
  Weight: 163.72 kg

DRUGS (1)
  1. REGRANEX [Suspect]
     Active Substance: BECAPLERMIN
     Indication: WOUND
     Dosage: UNK, 1X/DAY (ON FOR 12 HOURS, OFF FOR 12 HOURS)
     Route: 061
     Dates: start: 201612, end: 20170106

REACTIONS (2)
  - Osteomyelitis [Recovering/Resolving]
  - Toe amputation [Recovered/Resolved with Sequelae]

NARRATIVE: CASE EVENT DATE: 201701
